FAERS Safety Report 21935876 (Version 2)
Quarter: 2023Q1

REPORT INFORMATION
  Report Type: Report from Study
  Country: US (occurrence: US)
  Receive Date: 20230201
  Receipt Date: 20230228
  Transmission Date: 20230417
  Serious: Yes (Hospitalization, Other)
  Sender: FDA-Public Use
  Company Number: US-EXELIXIS-CABO-23060254

PATIENT
  Age: 69 Year
  Sex: Female
  Weight: 87.483 kg

DRUGS (38)
  1. CABOMETYX [Suspect]
     Active Substance: CABOZANTINIB S-MALATE
     Indication: Clear cell renal cell carcinoma
     Dosage: 20 MG, QD
     Route: 048
     Dates: start: 20220119, end: 20220503
  2. CABOMETYX [Suspect]
     Active Substance: CABOZANTINIB S-MALATE
     Dosage: 40 MG, QD
     Route: 048
     Dates: end: 20230108
  3. CABOMETYX [Suspect]
     Active Substance: CABOZANTINIB S-MALATE
     Dosage: 40 MG, QD
     Route: 048
     Dates: start: 20230126
  4. OPDIVO [Suspect]
     Active Substance: NIVOLUMAB
     Indication: Clear cell renal cell carcinoma
     Dosage: 360 MG, Q4WEEKS
     Route: 042
     Dates: start: 20220119, end: 20220503
  5. OPDIVO [Suspect]
     Active Substance: NIVOLUMAB
     Dosage: 480 MG, Q4WEEKS
     Route: 042
     Dates: start: 20220524, end: 20230108
  6. FULVESTRANT [Suspect]
     Active Substance: FULVESTRANT
     Indication: Product used for unknown indication
     Dosage: 500 MG ONCE ON CYCLE 1 DAYS 1, 15, 29 FOLLOWED BY ONCE Q28 DAYS
     Route: 030
     Dates: start: 20221201, end: 20221206
  7. ASPIRIN [Concomitant]
     Active Substance: ASPIRIN
  8. LOVENOX [Concomitant]
     Active Substance: ENOXAPARIN SODIUM
  9. LIPITOR [Concomitant]
     Active Substance: ATORVASTATIN CALCIUM
  10. DOTAREM [Concomitant]
     Active Substance: GADOTERATE MEGLUMINE
  11. ATIVAN [Concomitant]
     Active Substance: LORAZEPAM
  12. SODIUM CHLORIDE [Concomitant]
     Active Substance: SODIUM CHLORIDE
  13. ISOVUE [Concomitant]
     Active Substance: IOPAMIDOL
  14. TNKASE [Concomitant]
     Active Substance: TENECTEPLASE
  15. XANAX [Concomitant]
     Active Substance: ALPRAZOLAM
  16. PREMARIN [Concomitant]
     Active Substance: ESTROGENS, CONJUGATED
  17. COZAAR [Concomitant]
     Active Substance: LOSARTAN POTASSIUM
  18. TYLENOL [Concomitant]
     Active Substance: ACETAMINOPHEN
  19. COLACE [Concomitant]
     Active Substance: DOCUSATE SODIUM
  20. MYLANTA [Concomitant]
     Active Substance: ALUMINUM HYDROXIDE\DIMETHICONE\MAGNESIUM HYDROXIDE
  21. ZOFRAN [Concomitant]
     Active Substance: ONDANSETRON HYDROCHLORIDE
     Indication: Nausea
  22. ZOFRAN [Concomitant]
     Active Substance: ONDANSETRON HYDROCHLORIDE
     Indication: Vomiting
  23. PLAVIX [Concomitant]
     Active Substance: CLOPIDOGREL BISULFATE
  24. ZYLOPRIM [Concomitant]
     Active Substance: ALLOPURINOL
     Indication: Gout
  25. MAGNESIUM OXIDE [Concomitant]
     Active Substance: MAGNESIUM OXIDE
  26. COMPAZINE [Concomitant]
     Active Substance: PROCHLORPERAZINE MALEATE
     Indication: Nausea
  27. PROCARDIA [Concomitant]
     Active Substance: NIFEDIPINE
  28. BEMPEGALDESLEUKIN [Concomitant]
     Active Substance: BEMPEGALDESLEUKIN
  29. DELTASONE [Concomitant]
     Active Substance: PREDNISONE
  30. NORCO [Concomitant]
     Active Substance: ACETAMINOPHEN\HYDROCODONE BITARTRATE
     Indication: Pain
  31. ATARAX [Concomitant]
     Active Substance: HYDROXYZINE HYDROCHLORIDE
     Indication: Pruritus
  32. UBRELVY [Concomitant]
     Active Substance: UBROGEPANT
  33. DENTAGEL [Concomitant]
     Active Substance: SODIUM FLUORIDE
  34. VOLTAREN [Concomitant]
     Active Substance: DICLOFENAC SODIUM
  35. HYDROQUINONE [Concomitant]
     Active Substance: HYDROQUINONE
     Indication: Pruritus
  36. RIBOCICLIB [Concomitant]
     Active Substance: RIBOCICLIB
  37. DOCETAXEL [Concomitant]
     Active Substance: DOCETAXEL
  38. CAPECITABINE [Concomitant]
     Active Substance: CAPECITABINE

REACTIONS (20)
  - Cerebral artery embolism [Unknown]
  - Cerebral infarction [Unknown]
  - Burning sensation [Unknown]
  - Migraine [Unknown]
  - Eating disorder [Recovering/Resolving]
  - Lymphadenopathy [Unknown]
  - Arthralgia [Recovered/Resolved]
  - Anxiety [Unknown]
  - Upper respiratory tract infection [Unknown]
  - Nocturia [Unknown]
  - Taste disorder [Recovering/Resolving]
  - Emotional disorder [Unknown]
  - Aspartate aminotransferase increased [Unknown]
  - Alanine aminotransferase increased [Unknown]
  - Rash [Recovering/Resolving]
  - Diarrhoea [Recovering/Resolving]
  - Weight decreased [Recovering/Resolving]
  - Metastases to lung [Unknown]
  - Pruritus [Unknown]
  - Pleural effusion [Unknown]

NARRATIVE: CASE EVENT DATE: 20220927
